FAERS Safety Report 8048725-3 (Version None)
Quarter: 2011Q4

REPORT INFORMATION
  Report Type: 
  Country: None (occurrence: None)
  Receive Date: 20111209
  Receipt Date: 20111004
  Transmission Date: 20120403
  Serious: No
  Sender: FDA-Public Use
  Company Number: 2011SP047366

PATIENT
  Age: 60 Year
  Sex: Male

DRUGS (9)
  1. NOVOLOG [Concomitant]
  2. LANTUS [Concomitant]
  3. LISINOPRIL [Concomitant]
  4. ASPIRIN [Concomitant]
  5. IBUPROFEN (ADVIL) [Concomitant]
  6. CLOBETASOL PROPIONATE [Concomitant]
  7. PEG-INTRON [Suspect]
     Indication: PRODUCT USED FOR UNKNOWN INDICATION
     Dosage: 150 MCG;QW;SC
     Route: 058
     Dates: start: 20110804
  8. VICTRELIS [Suspect]
     Indication: HEPATITIS C
     Dosage: 800 MG;TID;PO
     Route: 048
     Dates: start: 20110904
  9. RIBAVIRIN [Suspect]
     Indication: PRODUCT USED FOR UNKNOWN INDICATION
     Dosage: 600 MG;BID;PO
     Route: 048
     Dates: start: 20110804

REACTIONS (5)
  - DYSPNOEA [None]
  - HEADACHE [None]
  - NAUSEA [None]
  - DIZZINESS [None]
  - DRY MOUTH [None]
